FAERS Safety Report 14925978 (Version 1)
Quarter: 2018Q2

REPORT INFORMATION
  Report Type: Spontaneous
  Country: US (occurrence: US)
  Receive Date: 20180522
  Receipt Date: 20180522
  Transmission Date: 20180711
  Serious: Yes (Hospitalization, Other)
  Sender: FDA-Public Use
  Company Number: US-AMGEN-USASP2018065825

PATIENT
  Sex: Female

DRUGS (1)
  1. PROLIA [Suspect]
     Active Substance: DENOSUMAB
     Indication: OSTEOPOROSIS
     Dosage: UNK
     Route: 065

REACTIONS (19)
  - Alpha 2 globulin decreased [Unknown]
  - Syncope [Unknown]
  - Skin exfoliation [Unknown]
  - Asthenia [Unknown]
  - Red blood cell count decreased [Unknown]
  - Pyrexia [Unknown]
  - Myalgia [Unknown]
  - Vertigo [Unknown]
  - Pain in jaw [Unknown]
  - Dizziness [Unknown]
  - Pain in extremity [Unknown]
  - Gastrointestinal disorder [Unknown]
  - Constipation [Unknown]
  - White blood cell count decreased [Unknown]
  - Alpha 1 globulin decreased [Unknown]
  - Blister [Unknown]
  - Loss of consciousness [Unknown]
  - Dry skin [Unknown]
  - Eczema [Unknown]

NARRATIVE: CASE EVENT DATE: 20180420
